FAERS Safety Report 8537036-5 (Version None)
Quarter: 2012Q3

REPORT INFORMATION
  Report Type: 
  Country: None (occurrence: None)
  Receive Date: 20120725
  Receipt Date: 20120717
  Transmission Date: 20120928
  Serious: Yes (Hospitalization)
  Sender: FDA-Public Use
  Company Number: FR-PFIZER INC-2012175623

PATIENT
  Age: 59 Year
  Sex: Male

DRUGS (3)
  1. TAZOBACTAM [Suspect]
     Indication: SUBDIAPHRAGMATIC ABSCESS
     Dosage: UNK
     Route: 042
     Dates: start: 20120512, end: 20120606
  2. VANCOMYCIN HCL [Suspect]
     Indication: SUBDIAPHRAGMATIC ABSCESS
     Dosage: UNK
     Route: 042
     Dates: start: 20120512, end: 20120525
  3. AUGMENTIN '500' [Suspect]
     Indication: SUBDIAPHRAGMATIC ABSCESS
     Dosage: UNK
     Route: 048
     Dates: start: 20120324, end: 20120510

REACTIONS (1)
  - DRUG RASH WITH EOSINOPHILIA AND SYSTEMIC SYMPTOMS [None]
